FAERS Safety Report 9667962 (Version 3)
Quarter: 2013Q4

REPORT INFORMATION
  Report Type: Spontaneous
  Country: US (occurrence: US)
  Receive Date: 20131104
  Receipt Date: 20131219
  Transmission Date: 20140711
  Serious: Yes (Life-Threatening, Disabling)
  Sender: FDA-Public Use
  Company Number: US-GLAXOSMITHKLINE-A1047310A

PATIENT
  Age: 81 Year
  Sex: Male

DRUGS (4)
  1. COREG CR [Suspect]
     Indication: BLOOD PRESSURE
     Dosage: 40MG PER DAY
     Route: 048
     Dates: start: 2011
  2. BENICAR [Concomitant]
  3. THYROID MEDICATION [Concomitant]
  4. LIPITOR [Concomitant]

REACTIONS (3)
  - Hypotension [Recovered/Resolved]
  - Dysarthria [Recovered/Resolved]
  - Product quality issue [Unknown]
